FAERS Safety Report 10521699 (Version 1)
Quarter: 2014Q4

REPORT INFORMATION
  Report Type: Spontaneous
  Country: US (occurrence: None)
  Receive Date: 20141003
  Receipt Date: 20141003
  Transmission Date: 20150528
  Serious: Yes (Other)
  Sender: FDA-Public Use
  Company Number: 1219677

PATIENT
  Age: 63 Year
  Sex: Male
  Weight: 67 kg

DRUGS (10)
  1. LISINOPRIL (LISINOPRIL) (TABLET) [Concomitant]
  2. COPEGUS [Suspect]
     Active Substance: RIBAVIRIN
     Indication: CHRONIC HEPATITIS C
     Dosage: 1200 MG (600 MG, 1 IN 12 HR), ORAL
     Route: 048
  3. BOCEPREVIR (BOCEPREVIR) [Suspect]
     Active Substance: BOCEPREVIR
     Indication: CHRONIC HEPATITIS C
     Dosage: 2400 MG (800 MG, 3 IN 1 D), ORAL
     Route: 048
     Dates: start: 20130329
  4. FIORICET (BUTALBITAL) [Concomitant]
  5. FLUOXETINE (FLUOXETINE) [Concomitant]
     Active Substance: FLUOXETINE HYDROCHLORIDE
  6. METFORMIN (METRFORMIN) [Concomitant]
  7. AMLODIPINE [Concomitant]
     Active Substance: AMLODIPINE BESYLATE
  8. PEGASYS [Suspect]
     Active Substance: PEGINTERFERON ALFA-2A
     Indication: CHRONIC HEPATITIS C
     Route: 058
     Dates: start: 20130329
  9. PRILOSEC (OMEPRAZOLE) (TABLET) [Concomitant]
  10. PROCRIT [Concomitant]
     Active Substance: ERYTHROPOIETIN

REACTIONS (4)
  - Fatigue [None]
  - Anaemia [None]
  - Dyspnoea [None]
  - Abdominal discomfort [None]

NARRATIVE: CASE EVENT DATE: 20130510
